FAERS Safety Report 18261021 (Version 3)
Quarter: 2021Q1

REPORT INFORMATION
  Report Type: Report from Study
  Country: None (occurrence: US)
  Receive Date: 20200914
  Receipt Date: 20210106
  Transmission Date: 20210419
  Serious: Yes (Other)
  Sender: FDA-Public Use
  Company Number: US-ABBVIE-20K-163-3559126-00

PATIENT
  Sex: Female

DRUGS (1)
  1. HUMIRA [Suspect]
     Active Substance: ADALIMUMAB
     Indication: RHEUMATOID ARTHRITIS
     Dosage: CITRATE FREE
     Route: 058

REACTIONS (19)
  - Paralysis [Not Recovered/Not Resolved]
  - Polyp [Unknown]
  - Scoliosis [Unknown]
  - Nephropathy [Unknown]
  - Sciatic nerve injury [Not Recovered/Not Resolved]
  - Goitre [Not Recovered/Not Resolved]
  - Rotator cuff syndrome [Unknown]
  - Rheumatoid arthritis [Not Recovered/Not Resolved]
  - Medical device implantation [Unknown]
  - Dyspepsia [Not Recovered/Not Resolved]
  - Gout [Unknown]
  - Hypersensitivity [Unknown]
  - Arthritis [Unknown]
  - Cardiac murmur [Unknown]
  - Melanocytic naevus [Not Recovered/Not Resolved]
  - Sinus disorder [Unknown]
  - Osteoporosis [Unknown]
  - Diabetes mellitus [Not Recovered/Not Resolved]
  - Fibromyalgia [Unknown]
